FAERS Safety Report 18702909 (Version 1)
Quarter: 2021Q1

REPORT INFORMATION
  Report Type: Spontaneous
  Country: TR (occurrence: TR)
  Receive Date: 20210105
  Receipt Date: 20210105
  Transmission Date: 20210419
  Serious: No
  Sender: FDA-Public Use
  Company Number: TR-LUPIN PHARMACEUTICALS INC.-2020-04561

PATIENT
  Age: 25 Year
  Sex: Female

DRUGS (10)
  1. INSULIN [Suspect]
     Active Substance: INSULIN NOS
     Indication: FAMILIAL HYPERTRIGLYCERIDAEMIA
     Dosage: UNK
     Route: 065
  2. FENOFIBRATE. [Suspect]
     Active Substance: FENOFIBRATE
     Indication: PANCREATITIS
  3. PARACETAMOL [Suspect]
     Active Substance: ACETAMINOPHEN
     Indication: PANCREATITIS
  4. GEMFIBROZIL. [Suspect]
     Active Substance: GEMFIBROZIL
     Indication: PANCREATITIS
  5. INSULIN [Suspect]
     Active Substance: INSULIN NOS
     Indication: PANCREATITIS
  6. NORMAL SALINE [Suspect]
     Active Substance: SODIUM CHLORIDE
     Indication: PANCREATITIS
  7. GEMFIBROZIL. [Suspect]
     Active Substance: GEMFIBROZIL
     Indication: FAMILIAL HYPERTRIGLYCERIDAEMIA
     Dosage: 1000 MILLIGRAM
     Route: 065
  8. NORMAL SALINE [Suspect]
     Active Substance: SODIUM CHLORIDE
     Indication: FAMILIAL HYPERTRIGLYCERIDAEMIA
     Dosage: DOSE: 1000CC
     Route: 065
  9. FENOFIBRATE. [Suspect]
     Active Substance: FENOFIBRATE
     Indication: FAMILIAL HYPERTRIGLYCERIDAEMIA
     Dosage: 850 MILLIGRAM
     Route: 065
  10. PARACETAMOL [Suspect]
     Active Substance: ACETAMINOPHEN
     Indication: FAMILIAL HYPERTRIGLYCERIDAEMIA
     Dosage: 1000 MILLIGRAM
     Route: 042

REACTIONS (2)
  - Normal newborn [Unknown]
  - Exposure during pregnancy [Unknown]
